FAERS Safety Report 7126597-9 (Version None)
Quarter: 2010Q4

REPORT INFORMATION
  Report Type: 
  Country: None (occurrence: None)
  Receive Date: 20101129
  Receipt Date: 20101119
  Transmission Date: 20110411
  Serious: Yes (Death, Hospitalization)
  Sender: FDA-Public Use
  Company Number: FR-CEPHALON-2010006135

PATIENT
  Sex: Male

DRUGS (2)
  1. TREANDA [Suspect]
     Indication: MULTIPLE MYELOMA
     Route: 042
     Dates: start: 20100705, end: 20100803
  2. DEXAMETHASONE [Suspect]
     Indication: MULTIPLE MYELOMA
     Dates: start: 20100701, end: 20100801

REACTIONS (6)
  - CARDIAC ARREST [None]
  - CARDIO-RESPIRATORY ARREST [None]
  - LEUKOPENIA [None]
  - RENAL FAILURE ACUTE [None]
  - SEPTIC SHOCK [None]
  - THROMBOCYTOPENIA [None]
